FAERS Safety Report 6737379-1 (Version None)
Quarter: 2010Q2

REPORT INFORMATION
  Report Type: 
  Country: None (occurrence: None)
  Receive Date: 20100524
  Receipt Date: 20100517
  Transmission Date: 20101027
  Serious: Yes (Hospitalization, Other)
  Sender: FDA-Public Use
  Company Number: US-JNJFOC-20100506962

PATIENT
  Age: 4 Year
  Sex: Male

DRUGS (4)
  1. CONCENTRATED MOTRIN INFANTS' DYE-FREE [Suspect]
     Route: 048
  2. CONCENTRATED MOTRIN INFANTS' DYE-FREE [Suspect]
     Indication: DRUG USE FOR UNKNOWN INDICATION
     Route: 048
  3. CONCENTRATED TYLENOL INFANTS' DYE FREE CHERRY [Suspect]
     Route: 065
  4. CONCENTRATED TYLENOL INFANTS' DYE FREE CHERRY [Suspect]
     Indication: DRUG USE FOR UNKNOWN INDICATION
     Route: 065

REACTIONS (5)
  - ASTHMA [None]
  - FEBRILE CONVULSION [None]
  - PRODUCT QUALITY ISSUE [None]
  - PYREXIA [None]
  - UPPER RESPIRATORY TRACT INFECTION [None]
